FAERS Safety Report 13204461 (Version 1)
Quarter: 2017Q1

REPORT INFORMATION
  Report Type: Spontaneous
  Country: US (occurrence: US)
  Receive Date: 20170209
  Receipt Date: 20170209
  Transmission Date: 20170428
  Serious: No
  Sender: FDA-Public Use
  Company Number: US-009507513-1701USA001846

PATIENT
  Sex: Female

DRUGS (2)
  1. PRINIVIL [Concomitant]
     Active Substance: LISINOPRIL
     Indication: NEPHROPROTECTIVE THERAPY
     Route: 048
  2. JANUMET [Suspect]
     Active Substance: METFORMIN HYDROCHLORIDE\SITAGLIPTIN PHOSPHATE
     Indication: TYPE 2 DIABETES MELLITUS
     Dosage: 1 DF, BID
     Route: 048

REACTIONS (2)
  - Blood glucose increased [Unknown]
  - Drug dose omission [Unknown]
